FAERS Safety Report 8258426-4 (Version None)
Quarter: 2012Q1

REPORT INFORMATION
  Report Type: 
  Country: None (occurrence: None)
  Receive Date: 20120322
  Receipt Date: 20111229
  Transmission Date: 20120608
  Serious: Yes (Hospitalization)
  Sender: FDA-Public Use
  Company Number: UTC-013987

PATIENT
  Age: 75 Year
  Sex: Male
  Weight: 55.45 kg

DRUGS (2)
  1. OXYGEN (OXYGEN) [Concomitant]
  2. TYVASO [Suspect]
     Indication: PULMONARY ARTERIAL HYPERTENSION
     Dosage: 96 MCG (24 MCG, 4 IN 1 D),INHALATION
     Route: 055
     Dates: start: 20100702

REACTIONS (1)
  - CEREBROVASCULAR ACCIDENT [None]
